FAERS Safety Report 24652344 (Version 2)
Quarter: 2025Q1

REPORT INFORMATION
  Report Type: Report from Study
  Country: CN (occurrence: CN)
  Receive Date: 20241122
  Receipt Date: 20250113
  Transmission Date: 20250409
  Serious: Yes (Other)
  Sender: ROCHE
  Company Number: CN-ROCHE-10000134725

PATIENT

DRUGS (1)
  1. TOCILIZUMAB [Suspect]
     Active Substance: TOCILIZUMAB
     Indication: Non-small cell lung cancer
     Route: 065

REACTIONS (23)
  - Neutropenia [Unknown]
  - Vomiting [Unknown]
  - Abdominal pain [Unknown]
  - Diarrhoea [Unknown]
  - Constipation [Unknown]
  - Hepatic enzyme increased [Unknown]
  - Lipase increased [Unknown]
  - Haemoptysis [Unknown]
  - Dyspnoea [Unknown]
  - Rash [Unknown]
  - Anaemia [Unknown]
  - Leukopenia [Unknown]
  - Lymphopenia [Unknown]
  - Thrombocytopenia [Unknown]
  - Hypothyroidism [Unknown]
  - Acute kidney injury [Unknown]
  - Pneumonia [Unknown]
  - Urinary tract infection [Unknown]
  - Skin infection [Unknown]
  - Hyponatraemia [Unknown]
  - Hypocalcaemia [Unknown]
  - Hypercalcaemia [Unknown]
  - Hypokalaemia [Unknown]
